FAERS Safety Report 9771158 (Version 1)
Quarter: 2013Q4

REPORT INFORMATION
  Report Type: Spontaneous
  Country: SE (occurrence: SE)
  Receive Date: 20131218
  Receipt Date: 20131218
  Transmission Date: 20140711
  Serious: Yes (Hospitalization, Other)
  Sender: FDA-Public Use
  Company Number: SE-ABBVIE-13P-150-1180215-00

PATIENT
  Age: 38 Year
  Sex: Male

DRUGS (1)
  1. HUMIRA [Suspect]
     Indication: PSORIATIC ARTHROPATHY
     Dates: start: 2009, end: 201309

REACTIONS (7)
  - Brain oedema [Unknown]
  - Loss of consciousness [Unknown]
  - Respiration abnormal [Unknown]
  - Cough [Unknown]
  - Fatigue [Unknown]
  - CSF lactate increased [Unknown]
  - Headache [Unknown]
